FAERS Safety Report 9664775 (Version 1)
Quarter: 2013Q4

REPORT INFORMATION
  Report Type: Spontaneous
  Country: US (occurrence: US)
  Receive Date: 20131101
  Receipt Date: 20131101
  Transmission Date: 20140711
  Serious: Yes (Hospitalization)
  Sender: FDA-Public Use
  Company Number: US-BAYER-2013-133400

PATIENT
  Age: 46 Year
  Sex: Female

DRUGS (9)
  1. YASMIN [Suspect]
     Indication: AMENORRHOEA
  2. YASMIN [Suspect]
     Indication: HIRSUTISM
  3. FLEXERIL [Concomitant]
     Indication: PAIN
     Dosage: UNK,UNK,PRN
  4. PRILOSEC [Concomitant]
  5. TOPROL [Concomitant]
  6. LIPITOR [Concomitant]
  7. METOPROLOL [Concomitant]
  8. TYLENOL [PARACETAMOL] [Concomitant]
  9. PLAVIX [Concomitant]

REACTIONS (2)
  - Pulmonary embolism [Recovering/Resolving]
  - Deep vein thrombosis [Recovering/Resolving]
